FAERS Safety Report 9457233 (Version 1)
Quarter: 2013Q3

REPORT INFORMATION
  Report Type: Spontaneous
  Country: AU (occurrence: AU)
  Receive Date: 20130814
  Receipt Date: 20130814
  Transmission Date: 20140515
  Serious: Yes (Other)
  Sender: FDA-Public Use
  Company Number: AU-SHIRE-ALL1-2013-05421

PATIENT
  Sex: Female

DRUGS (1)
  1. MEZAVANT [Suspect]
     Indication: PRODUCT USED FOR UNKNOWN INDICATION
     Dosage: 2.4 G, 1X/DAY:QD
     Route: 048

REACTIONS (1)
  - Autoimmune haemolytic anaemia [Unknown]
